FAERS Safety Report 5923725-5 (Version None)
Quarter: 2008Q4

REPORT INFORMATION
  Report Type: 
  Country: None (occurrence: None)
  Receive Date: 20081020
  Receipt Date: 20081010
  Transmission Date: 20090506
  Serious: Yes (Other)
  Sender: FDA-Public Use
  Company Number: B0541692A

PATIENT
  Age: 55 Year
  Sex: Female

DRUGS (1)
  1. AVANDAMET [Suspect]
     Dosage: 4MG UNKNOWN
     Route: 048
     Dates: start: 20080301

REACTIONS (2)
  - ANAEMIA [None]
  - PALLOR [None]
